FAERS Safety Report 12700725 (Version 1)
Quarter: 2016Q3

REPORT INFORMATION
  Report Type: Spontaneous
  Country: CN (occurrence: CN)
  Receive Date: 20160830
  Receipt Date: 20160830
  Transmission Date: 20161109
  Serious: Yes (Other)
  Sender: FDA-Public Use
  Company Number: CN-ABBVIE-16P-035-1715130-00

PATIENT
  Age: 28 Year
  Sex: Male

DRUGS (2)
  1. DEPAKINE CHRONO [Suspect]
     Active Substance: VALPROATE SODIUM
     Indication: MOOD ALTERED
     Dosage: TABLET, EXTENDED RELEASE
     Route: 048
     Dates: start: 20160509
  2. DEPAKINE CHRONO [Suspect]
     Active Substance: VALPROATE SODIUM
     Indication: EMOTIONAL DISORDER
     Dosage: TABLET, EXTENDED RELEASE
     Route: 048
     Dates: end: 20160627

REACTIONS (2)
  - Platelet count decreased [Recovering/Resolving]
  - Granulocytopenia [Recovering/Resolving]

NARRATIVE: CASE EVENT DATE: 20160607
